FAERS Safety Report 5007504-1 (Version None)
Quarter: 2006Q2

REPORT INFORMATION
  Report Type: 
  Country: None (occurrence: None)
  Receive Date: 20060517
  Receipt Date: 20060510
  Transmission Date: 20061013
  Serious: Yes (Hospitalization)
  Sender: FDA-Public Use
  Company Number: 2006BI006838

PATIENT
  Sex: Female

DRUGS (2)
  1. NATALIZUMAB [Suspect]
     Indication: MULTIPLE SCLEROSIS
     Dosage: IV
     Route: 042
  2. AVONEX [Concomitant]

REACTIONS (7)
  - CONTUSION [None]
  - ENZYME ABNORMALITY [None]
  - INJECTION SITE HAEMORRHAGE [None]
  - LABORATORY TEST ABNORMAL [None]
  - PYREXIA [None]
  - SEPSIS [None]
  - URINARY TRACT INFECTION [None]
